FAERS Safety Report 25858690 (Version 1)
Quarter: 2025Q3

REPORT INFORMATION
  Report Type: Spontaneous
  Country: US (occurrence: US)
  Receive Date: 20250929
  Receipt Date: 20250929
  Transmission Date: 20251020
  Serious: Yes (Hospitalization, Other)
  Sender: DAIICHI
  Company Number: US-DSJP-DS-2025-166499-US

PATIENT
  Age: 76 Year
  Sex: Female

DRUGS (3)
  1. ENHERTU [Suspect]
     Active Substance: FAM-TRASTUZUMAB DERUXTECAN-NXKI
     Indication: Cholangiocarcinoma
     Route: 065
     Dates: start: 202405, end: 202505
  2. ZANIDATAMAB [Suspect]
     Active Substance: ZANIDATAMAB
     Indication: Cholangiocarcinoma
     Route: 065
     Dates: start: 202505
  3. HYDROCORTISONE [Concomitant]
     Active Substance: HYDROCORTISONE
     Indication: Product used for unknown indication
     Route: 065

REACTIONS (4)
  - Urinary tract infection [Unknown]
  - Device related infection [Unknown]
  - Metastases to lung [Unknown]
  - Adrenal insufficiency [Unknown]
